FAERS Safety Report 9196921 (Version 1)
Quarter: 2013Q1

REPORT INFORMATION
  Report Type: Spontaneous
  Country: US (occurrence: None)
  Receive Date: 20120709
  Receipt Date: 20120709
  Transmission Date: 20140127
  Serious: Yes (Hospitalization, Other)
  Sender: FDA-Public Use
  Company Number: PHEH2012US002034

PATIENT
  Age: 66 Year
  Sex: Male

DRUGS (5)
  1. GLEEVEC [Suspect]
     Indication: CHRONIC MYELOID LEUKAEMIA
     Route: 048
     Dates: start: 20090814, end: 20091103
  2. METRFORMIN (METFORMIN) [Concomitant]
  3. JANUVIA (SITAGLIPTIN PHOSPATE) [Concomitant]
  4. LISINORIL  (LISINOPRIL) [Concomitant]
  5. FUROSEMIDE (FUROSEMIDE) [Concomitant]

REACTIONS (5)
  - Renal failure acute [None]
  - Oedema peripheral [None]
  - Rash [None]
  - Dyspnoea [None]
  - Diarrhoea [None]
